FAERS Safety Report 17213779 (Version 1)
Quarter: 2020Q3

REPORT INFORMATION
  Report Type: Report from Study
  Country: DE (occurrence: DE)
  Receive Date: 20191230
  Receipt Date: 20191230
  Transmission Date: 20201105
  Serious: Yes (Other)
  Sender: FDA-Public Use
  Company Number: DE-PFIZER INC-2019554865

PATIENT
  Age: 72 Year
  Sex: Male

DRUGS (13)
  1. POLATUZUMAB VEDOTIN. [Suspect]
     Active Substance: POLATUZUMAB VEDOTIN
     Dosage: 145.8 MILLILITER, QD
     Route: 042
     Dates: start: 20190807
  2. TORASEMID [Suspect]
     Active Substance: TORSEMIDE
     Dosage: UNK
     Route: 065
  3. POLATUZUMAB VEDOTIN. [Suspect]
     Active Substance: POLATUZUMAB VEDOTIN
     Dosage: 139.5 MILLILITER, QD
     Route: 042
     Dates: start: 20190619
  4. DUODART [Suspect]
     Active Substance: DUTASTERIDE\TAMSULOSIN
     Dosage: UNK
     Route: 065
  5. PANTOPRAZOLE [Suspect]
     Active Substance: PANTOPRAZOLE
     Dosage: UNK
     Route: 065
  6. POLATUZUMAB VEDOTIN. [Suspect]
     Active Substance: POLATUZUMAB VEDOTIN
     Indication: DIFFUSE LARGE B-CELL LYMPHOMA
     Dosage: 144 MILLILITER, QD
     Route: 042
     Dates: start: 20190530
  7. TAMSULOSIN HYDROCHLORIDE. [Suspect]
     Active Substance: TAMSULOSIN HYDROCHLORIDE
     Dosage: UNK
     Route: 065
  8. POLATUZUMAB VEDOTIN. [Suspect]
     Active Substance: POLATUZUMAB VEDOTIN
     Dosage: 139.5 MILLILITER, QD
     Route: 042
     Dates: end: 20190619
  9. PREDNISOLON [PREDNISOLONE] [Suspect]
     Active Substance: PREDNISOLONE
     Dosage: UNK
     Route: 065
  10. POLATUZUMAB VEDOTIN. [Suspect]
     Active Substance: POLATUZUMAB VEDOTIN
     Dosage: 140.4 MILLILITER, QD
     Route: 042
     Dates: end: 20190716
  11. POLATUZUMAB VEDOTIN. [Suspect]
     Active Substance: POLATUZUMAB VEDOTIN
     Dosage: 145.8 MILLILITER, QD
     Route: 042
     Dates: end: 20190807
  12. POLATUZUMAB VEDOTIN. [Suspect]
     Active Substance: POLATUZUMAB VEDOTIN
     Dosage: 144 MILLILITER, QD
     Route: 042
     Dates: end: 20190530
  13. POLATUZUMAB VEDOTIN. [Suspect]
     Active Substance: POLATUZUMAB VEDOTIN
     Dosage: 140.4 MILLILITER, QD
     Route: 042
     Dates: start: 20190716

REACTIONS (14)
  - Hypokalaemia [Recovered/Resolved]
  - Platelet count decreased [Not Recovered/Not Resolved]
  - Anaemia [Not Recovered/Not Resolved]
  - Urinary hesitation [Recovered/Resolved]
  - Hyperkalaemia [Recovered/Resolved]
  - Hyperuricaemia [Recovered/Resolved]
  - White blood cell count decreased [Not Recovered/Not Resolved]
  - Gamma-glutamyltransferase increased [Recovered/Resolved]
  - Blood alkaline phosphatase increased [Recovered/Resolved]
  - Aspartate aminotransferase increased [Recovered/Resolved]
  - Renal disorder [Unknown]
  - Muscle spasms [Recovered/Resolved]
  - Hypoalbuminaemia [Recovered/Resolved]
  - Hypocalcaemia [Recovered/Resolved]

NARRATIVE: CASE EVENT DATE: 20190530
